FAERS Safety Report 16842003 (Version 1)
Quarter: 2019Q3

REPORT INFORMATION
  Report Type: Spontaneous
  Country: GB (occurrence: GB)
  Receive Date: 20190923
  Receipt Date: 20190923
  Transmission Date: 20191005
  Serious: Yes (Other)
  Sender: FDA-Public Use
  Company Number: GB-ASTRAZENECA-2019SF31538

PATIENT
  Age: 55 Year
  Sex: Male
  Weight: 70 kg

DRUGS (14)
  1. QVAR [Concomitant]
     Active Substance: BECLOMETHASONE DIPROPIONATE
  2. PIOGLITAZONE. [Concomitant]
     Active Substance: PIOGLITAZONE
  3. EXENATIDE. [Concomitant]
     Active Substance: EXENATIDE
  4. OMEPRAZOLE. [Suspect]
     Active Substance: OMEPRAZOLE
     Indication: GASTROOESOPHAGEAL REFLUX DISEASE
     Route: 048
     Dates: start: 201812, end: 201908
  5. FYBOGEL [Concomitant]
     Active Substance: PLANTAGO OVATA SEED
  6. ATROPINE. [Concomitant]
     Active Substance: ATROPINE
     Dosage: NIGHT.
  7. BISOPROLOL [Concomitant]
     Active Substance: BISOPROLOL
  8. CLOZAPINE. [Suspect]
     Active Substance: CLOZAPINE
     Indication: SCHIZOPHRENIA
     Dosage: 400 UG/INHAL, 75MG MORNING + 125MG NIGHT
     Route: 048
  9. FINASTERIDE. [Concomitant]
     Active Substance: FINASTERIDE
  10. METFORMIN [Concomitant]
     Active Substance: METFORMIN HYDROCHLORIDE
  11. PARACETAMOL [Concomitant]
     Active Substance: ACETAMINOPHEN
  12. APIXABAN [Concomitant]
     Active Substance: APIXABAN
  13. OMEPRAZOLE. [Suspect]
     Active Substance: OMEPRAZOLE
     Indication: GASTROOESOPHAGEAL REFLUX DISEASE
     Route: 048
     Dates: end: 201812
  14. FERROUS FUMARATE [Concomitant]
     Active Substance: FERROUS FUMARATE

REACTIONS (2)
  - Antipsychotic drug level decreased [Unknown]
  - Drug interaction [Not Recovered/Not Resolved]

NARRATIVE: CASE EVENT DATE: 201812
